FAERS Safety Report 26193263 (Version 1)
Quarter: 2025Q4

REPORT INFORMATION
  Report Type: Spontaneous
  Country: US (occurrence: None)
  Receive Date: 20251223
  Receipt Date: 20251223
  Transmission Date: 20260118
  Serious: No
  Sender: FDA-CTU
  Company Number: None

PATIENT
  Age: 30 Year
  Sex: Female

DRUGS (2)
  1. ENBREL [Suspect]
     Active Substance: ETANERCEPT
  2. PEANUT [Suspect]
     Active Substance: PEANUT

REACTIONS (4)
  - Hypersensitivity [None]
  - Food allergy [None]
  - Throat tightness [None]
  - Chest discomfort [None]

NARRATIVE: CASE EVENT DATE: 20250715
